FAERS Safety Report 18022072 (Version 1)
Quarter: 2020Q3

REPORT INFORMATION
  Report Type: Spontaneous
  Country: FR (occurrence: FR)
  Receive Date: 20200714
  Receipt Date: 20200714
  Transmission Date: 20201103
  Serious: Yes (Other)
  Sender: FDA-Public Use
  Company Number: FR-TEVA-2020-FR-1800222

PATIENT
  Age: 16 Year
  Sex: Female
  Weight: 54 kg

DRUGS (1)
  1. ISOTRETINOIN. [Suspect]
     Active Substance: ISOTRETINOIN
     Indication: ACNE
     Route: 048
     Dates: start: 20200429

REACTIONS (2)
  - Xerophthalmia [Not Recovered/Not Resolved]
  - Xerosis [Not Recovered/Not Resolved]

NARRATIVE: CASE EVENT DATE: 202005
